FAERS Safety Report 6268204-3 (Version None)
Quarter: 2009Q3

REPORT INFORMATION
  Report Type: 
  Country: None (occurrence: None)
  Receive Date: 20090715
  Receipt Date: 20090708
  Transmission Date: 20100115
  Serious: Yes (Life-Threatening, Hospitalization, Other)
  Sender: FDA-Public Use
  Company Number: FR-CELGENEUS-056-C5013-09070517

PATIENT
  Sex: Female
  Weight: 75 kg

DRUGS (15)
  1. CC-5013 [Suspect]
     Indication: MULTIPLE MYELOMA
     Route: 048
     Dates: start: 20090218
  2. CC-5013 [Suspect]
     Route: 048
     Dates: start: 20090611, end: 20090701
  3. DEXAMETHASONE [Suspect]
     Indication: MULTIPLE MYELOMA
     Route: 065
     Dates: start: 20090218
  4. DEXAMETHASONE [Suspect]
     Route: 065
     Dates: start: 20090611, end: 20090702
  5. INIPOMP [Concomitant]
     Indication: PROPHYLAXIS
     Route: 048
     Dates: start: 20090218, end: 20090419
  6. ZELITREX [Concomitant]
     Indication: PROPHYLAXIS
     Route: 048
     Dates: start: 20090218
  7. BACTRIM DS [Concomitant]
     Indication: PROPHYLAXIS
     Route: 048
     Dates: start: 20090218
  8. SPECIAFOLDINE [Concomitant]
     Indication: PROPHYLAXIS
     Route: 048
     Dates: start: 20090218
  9. ASPEGIC 1000 [Concomitant]
     Indication: PROPHYLAXIS
     Route: 048
     Dates: start: 20090218, end: 20090708
  10. ENDOTELON [Concomitant]
     Indication: VENOUS INSUFFICIENCY
     Route: 048
     Dates: start: 19920101
  11. ANT [Concomitant]
     Route: 048
     Dates: start: 19990101
  12. LEXOMIL [Concomitant]
     Route: 048
     Dates: start: 20080101
  13. ATENOLOL [Concomitant]
     Route: 048
     Dates: start: 20070101, end: 20090709
  14. ATENOLOL [Concomitant]
     Route: 048
     Dates: start: 20090709
  15. MOPRAL [Concomitant]
     Indication: PROPHYLAXIS
     Route: 048
     Dates: start: 20090101

REACTIONS (2)
  - DEEP VEIN THROMBOSIS [None]
  - PULMONARY EMBOLISM [None]
